FAERS Safety Report 16384568 (Version 1)
Quarter: 2019Q3

REPORT INFORMATION
  Report Type: Spontaneous
  Country: US (occurrence: US)
  Receive Date: 20190531
  Receipt Date: 20190531
  Transmission Date: 20191004
  Serious: Yes (Other)
  Sender: FDA-Public Use
  Company Number: None

PATIENT
  Age: 78 Year
  Sex: Female
  Weight: 94.5 kg

DRUGS (20)
  1. OMEPRAZOLE. [Concomitant]
     Active Substance: OMEPRAZOLE
  2. QVAR [Concomitant]
     Active Substance: BECLOMETHASONE DIPROPIONATE
  3. ALPRAZOLAM. [Concomitant]
     Active Substance: ALPRAZOLAM
  4. BETOPTIC-S [Concomitant]
     Active Substance: BETAXOLOL HYDROCHLORIDE
  5. ZOMETA [Concomitant]
     Active Substance: ZOLEDRONIC ACID
  6. COENZYME Q10 [Concomitant]
     Active Substance: UBIDECARENONE
  7. CLINDAMYCIN PHOSPHATE. [Concomitant]
     Active Substance: CLINDAMYCIN PHOSPHATE
  8. FISH OIL CONCENTRATE [Concomitant]
     Active Substance: FISH OIL
  9. SYMBICORT [Concomitant]
     Active Substance: BUDESONIDE\FORMOTEROL FUMARATE DIHYDRATE
  10. FLUTICASONE-SALMETEROL [Concomitant]
  11. IBRANCE [Suspect]
     Active Substance: PALBOCICLIB
     Indication: PRODUCT USED FOR UNKNOWN INDICATION
     Route: 048
     Dates: start: 20170830
  12. OXYCONTIN [Concomitant]
     Active Substance: OXYCODONE HYDROCHLORIDE
  13. DULCOLAX STOOL SOFTENER [Concomitant]
     Active Substance: DOCUSATE SODIUM
  14. ESCITALOPRAM [Concomitant]
     Active Substance: ESCITALOPRAM OXALATE
  15. NASONEX [Concomitant]
     Active Substance: MOMETASONE FUROATE
  16. PROAIR HFA [Concomitant]
     Active Substance: ALBUTEROL SULFATE
  17. MIRTAZAPINE. [Concomitant]
     Active Substance: MIRTAZAPINE
  18. TRETINOIN. [Concomitant]
     Active Substance: TRETINOIN
  19. CALCIUM 500 + D3 [Concomitant]
  20. METRONIDAZOLE. [Concomitant]
     Active Substance: METRONIDAZOLE

REACTIONS (1)
  - Cytopenia [None]
